FAERS Safety Report 5059005-2 (Version None)
Quarter: 2006Q3

REPORT INFORMATION
  Report Type: 
  Country: None (occurrence: None)
  Receive Date: 20060719
  Receipt Date: 20060711
  Transmission Date: 20061208
  Serious: Yes (Hospitalization)
  Sender: FDA-Public Use
  Company Number: 2006085960

PATIENT
  Age: 38 Year
  Sex: Female
  Weight: 54.4316 kg

DRUGS (2)
  1. HYDROCORTISONE [Suspect]
     Indication: DERMATITIS CONTACT
     Dosage: AN INCH ON BOTH FOREARMS ONCE, TOPICAL
     Route: 061
     Dates: start: 20060501, end: 20060501
  2. FLUTICASONE PROPIONATE [Suspect]
     Indication: DERMATITIS CONTACT
     Dosage: AN INCH (FREQUENCY UNSPECIFIED), TOPICAL
     Route: 061
     Dates: start: 20060501

REACTIONS (8)
  - CHEST PAIN [None]
  - DIZZINESS [None]
  - HEADACHE [None]
  - HYPOAESTHESIA [None]
  - MALAISE [None]
  - NERVOUS SYSTEM DISORDER [None]
  - TREMOR [None]
  - VOMITING [None]
